FAERS Safety Report 6670808-0 (Version None)
Quarter: 2010Q2

REPORT INFORMATION
  Report Type: 
  Country: None (occurrence: None)
  Receive Date: 20100406
  Receipt Date: 20100406
  Transmission Date: 20101027
  Serious: Yes (Other)
  Sender: FDA-Public Use
  Company Number: None

PATIENT
  Age: 69 Year
  Sex: Male
  Weight: 77.1115 kg

DRUGS (1)
  1. DIPHENHYDRAMINE HCL [Suspect]
     Indication: HYPERSENSITIVITY
     Dosage: 25 MG 1 DAILY PO
     Route: 048
     Dates: start: 20100403, end: 20100403

REACTIONS (7)
  - CONDITION AGGRAVATED [None]
  - HYPERGLYCAEMIA [None]
  - NASAL CONGESTION [None]
  - NAUSEA [None]
  - NEURALGIA [None]
  - REBOUND EFFECT [None]
  - VISION BLURRED [None]
